FAERS Safety Report 9525287 (Version 2)
Quarter: 2013Q4

REPORT INFORMATION
  Report Type: Spontaneous
  Country: JP (occurrence: JP)
  Receive Date: 20130916
  Receipt Date: 20131011
  Transmission Date: 20140711
  Serious: Yes (Life-Threatening)
  Sender: FDA-Public Use
  Company Number: JP-ASTRAZENECA-2013SE68801

PATIENT
  Age: 45 Year
  Sex: Male

DRUGS (5)
  1. DIPRIVAN KIT [Suspect]
     Indication: INDUCTION OF ANAESTHESIA
     Route: 042
  2. ROCURONIUM [Concomitant]
     Indication: INDUCTION OF ANAESTHESIA
  3. REMIFENTANIL [Concomitant]
     Indication: INDUCTION OF ANAESTHESIA
  4. REMIFENTANIL [Concomitant]
     Indication: MAINTENANCE OF ANAESTHESIA
  5. SEVOFLURANE [Concomitant]
     Indication: MAINTENANCE OF ANAESTHESIA

REACTIONS (3)
  - Sick sinus syndrome [Unknown]
  - Cardiac arrest [Recovered/Resolved]
  - Sinus arrest [Recovered/Resolved]
